FAERS Safety Report 17669994 (Version 7)
Quarter: 2022Q2

REPORT INFORMATION
  Report Type: Spontaneous
  Country: US (occurrence: US)
  Receive Date: 20200415
  Receipt Date: 20220509
  Transmission Date: 20220720
  Serious: Yes (Other)
  Sender: FDA-Public Use
  Company Number: US-PFIZER INC-2020153542

PATIENT
  Age: 83 Year
  Sex: Female

DRUGS (5)
  1. DETROL LA [Suspect]
     Active Substance: TOLTERODINE TARTRATE
     Indication: Hypertonic bladder
     Dosage: 4 MG
     Dates: start: 1988
  2. ATENOLOL [Concomitant]
     Active Substance: ATENOLOL
     Dosage: UNK (50 MG)
  3. ENALAPRIL [Concomitant]
     Active Substance: ENALAPRIL
     Dosage: UNK (20 MG)
  4. AMITRIPTYLINE [Concomitant]
     Active Substance: AMITRIPTYLINE
     Dosage: UNK (500MG)
  5. HYDROXYUREA [Concomitant]
     Active Substance: HYDROXYUREA
     Dosage: 500 MG, 1X/DAY
     Dates: start: 2009

REACTIONS (6)
  - Arthritis [Unknown]
  - Fatigue [Unknown]
  - Nervousness [Unknown]
  - Malaise [Unknown]
  - Arthropathy [Unknown]
  - Gait disturbance [Unknown]
